FAERS Safety Report 14649376 (Version 1)
Quarter: 2018Q1

REPORT INFORMATION
  Report Type: Other
  Country: KR (occurrence: KR)
  Receive Date: 20180316
  Receipt Date: 20180316
  Transmission Date: 20180509
  Serious: No
  Sender: FDA-Public Use
  Company Number: KR-LEADING PHARMA-2043953

PATIENT
  Age: 43 Year
  Sex: Male

DRUGS (1)
  1. HYDROCHLOROTHIAZIDE. [Suspect]
     Active Substance: HYDROCHLOROTHIAZIDE

REACTIONS (2)
  - Skin necrosis [Recovered/Resolved]
  - Extremity necrosis [None]
